FAERS Safety Report 6973513-6 (Version None)
Quarter: 2010Q3

REPORT INFORMATION
  Report Type: 
  Country: None (occurrence: None)
  Receive Date: 20100909
  Receipt Date: 20100831
  Transmission Date: 20110219
  Serious: Yes (Other)
  Sender: FDA-Public Use
  Company Number: HU-BRISTOL-MYERS SQUIBB COMPANY-15271489

PATIENT
  Age: 37 Year
  Sex: Male

DRUGS (3)
  1. BLINDED: ARIPIPRAZOLE IM [Suspect]
     Indication: SCHIZOPHRENIA
     Dates: start: 20091007, end: 20100824
  2. ARIPIPRAZOLE [Suspect]
     Route: 048
     Dates: start: 20091007, end: 20100824
  3. ALPRAZOLAM [Concomitant]
     Dates: start: 20060301

REACTIONS (1)
  - SCHIZOPHRENIA [None]
